FAERS Safety Report 9008922 (Version 1)
Quarter: 2013Q1

REPORT INFORMATION
  Report Type: Report from Study
  Country: US (occurrence: US)
  Receive Date: 20130111
  Receipt Date: 20130111
  Transmission Date: 20140127
  Serious: Yes (Hospitalization)
  Sender: FDA-Public Use
  Company Number: US-ROCHE-1176975

PATIENT
  Age: 84 Year
  Sex: Male
  Weight: 79.1 kg

DRUGS (7)
  1. BEVACIZUMAB [Suspect]
     Indication: GLIOBLASTOMA MULTIFORME
     Route: 042
     Dates: start: 20121120, end: 20121221
  2. ACETAMINOPHEN [Concomitant]
     Route: 065
     Dates: start: 2001
  3. SIMVASTATIN [Concomitant]
     Route: 065
     Dates: start: 2001
  4. LOSARTAN [Concomitant]
     Route: 065
     Dates: start: 20101122
  5. LOVENOX [Concomitant]
     Route: 065
     Dates: start: 20121221
  6. DEXAMETHASONE [Concomitant]
     Route: 065
     Dates: start: 20121203
  7. AMLODIPINE BESYLATE [Concomitant]
     Route: 065
     Dates: start: 20121205

REACTIONS (3)
  - Gait disturbance [Unknown]
  - Cognitive disorder [Unknown]
  - Fall [Unknown]
